FAERS Safety Report 21856779 (Version 2)
Quarter: 2023Q1

REPORT INFORMATION
  Report Type: Report from Study
  Country: US (occurrence: US)
  Receive Date: 20230113
  Receipt Date: 20230115
  Transmission Date: 20230418
  Serious: No
  Sender: FDA-Public Use
  Company Number: US-ABBVIE-4238249

PATIENT
  Sex: Female

DRUGS (1)
  1. RINVOQ [Suspect]
     Active Substance: UPADACITINIB
     Indication: Rheumatoid arthritis
     Route: 048
     Dates: start: 20220405

REACTIONS (5)
  - Fatigue [Recovering/Resolving]
  - Rheumatoid arthritis [Recovering/Resolving]
  - Infected bite [Unknown]
  - Weight decreased [Unknown]
  - Mood altered [Unknown]
